FAERS Safety Report 19802809 (Version 1)
Quarter: 2021Q3

REPORT INFORMATION
  Report Type: Spontaneous
  Country: US (occurrence: US)
  Receive Date: 20210908
  Receipt Date: 20210908
  Transmission Date: 20211014
  Serious: Yes (Other)
  Sender: FDA-Public Use
  Company Number: NVSC2021US199652

PATIENT
  Age: 78 Year
  Sex: Male

DRUGS (1)
  1. RIVASTIGMINE. [Suspect]
     Active Substance: RIVASTIGMINE
     Indication: DEMENTIA ALZHEIMER^S TYPE
     Dosage: UNK, USED FOR FIVE (5) DAYS
     Route: 065
     Dates: start: 20210820, end: 20210825

REACTIONS (10)
  - Malaise [Unknown]
  - Abdominal discomfort [Unknown]
  - Obstruction gastric [Unknown]
  - Dysphagia [Unknown]
  - Haematemesis [Unknown]
  - Decreased appetite [Unknown]
  - Wheezing [Unknown]
  - Nasal congestion [Recovered/Resolved]
  - Balance disorder [Unknown]
  - Arthralgia [Unknown]

NARRATIVE: CASE EVENT DATE: 20210821
